FAERS Safety Report 19243286 (Version 1)
Quarter: 2021Q2

REPORT INFORMATION
  Report Type: Spontaneous
  Country: US (occurrence: US)
  Receive Date: 20210511
  Receipt Date: 20210511
  Transmission Date: 20210717
  Serious: Yes (Hospitalization)
  Sender: FDA-Public Use
  Company Number: US-MYLANLABS-2021M1027698

PATIENT
  Age: 21 Month
  Sex: Female

DRUGS (3)
  1. SOTALOL. [Suspect]
     Active Substance: SOTALOL
     Indication: SUPRAVENTRICULAR TACHYCARDIA
     Dosage: 150 MILLIGRAM/SQ. METER, QDDIVIDED INTO THRICE?DAILY DOSES
     Route: 048
  2. SOTALOL. [Suspect]
     Active Substance: SOTALOL
     Dosage: 160 MILLIGRAM/SQ. METER, QDDIVIDED INTO THRICE?DAILY DOSES
     Route: 048
  3. SOTALOL. [Suspect]
     Active Substance: SOTALOL
     Dosage: 154 MILLIGRAM/SQ. METER, QDDIVIDED INTO THRICE?DAILY DOSES
     Route: 048

REACTIONS (8)
  - Generalised tonic-clonic seizure [Recovered/Resolved]
  - Agitation [Recovered/Resolved]
  - Hypoglycaemia [Recovered/Resolved]
  - Listless [Recovered/Resolved]
  - Mental status changes [Recovered/Resolved]
  - Feeling abnormal [Recovered/Resolved]
  - Unresponsive to stimuli [Recovered/Resolved]
  - Bradycardia [Recovered/Resolved]
